FAERS Safety Report 8531575-9 (Version None)
Quarter: 2012Q3

REPORT INFORMATION
  Report Type: 
  Country: None (occurrence: None)
  Receive Date: 20120723
  Receipt Date: 20120716
  Transmission Date: 20120928
  Serious: Yes (Hospitalization, Other)
  Sender: FDA-Public Use
  Company Number: US-JNJFOC-20100805844

PATIENT
  Sex: Male

DRUGS (6)
  1. LIPITOR [Concomitant]
  2. LEVAQUIN [Suspect]
     Indication: INFECTION PROPHYLAXIS
     Route: 048
     Dates: start: 20080101, end: 20080101
  3. PLAVIX [Concomitant]
  4. ASPIRIN [Concomitant]
  5. LEVAQUIN [Suspect]
     Route: 042
     Dates: start: 20080305, end: 20080307
  6. RANEXA [Concomitant]

REACTIONS (5)
  - PERIARTHRITIS [None]
  - JOINT INJURY [None]
  - TENDON RUPTURE [None]
  - ROTATOR CUFF SYNDROME [None]
  - BURSITIS [None]
